FAERS Safety Report 22389623 (Version 1)
Quarter: 2023Q2

REPORT INFORMATION
  Report Type: Spontaneous
  Country: US (occurrence: US)
  Receive Date: 20230531
  Receipt Date: 20230531
  Transmission Date: 20230722
  Serious: Yes (Other)
  Sender: FDA-Public Use
  Company Number: US-002147023-NVSC2023US120703

PATIENT
  Age: 7 Year
  Sex: Female

DRUGS (2)
  1. METHYLPREDNISOLONE [Suspect]
     Active Substance: METHYLPREDNISOLONE
     Indication: Immune-mediated hepatitis
     Dosage: 10 MG/KG, QD
     Route: 065
  2. METHYLPREDNISOLONE [Suspect]
     Active Substance: METHYLPREDNISOLONE
     Dosage: 2 MG/KG, QD (WEANING)
     Route: 065

REACTIONS (3)
  - Immune-mediated hepatitis [Recovering/Resolving]
  - Condition aggravated [Recovering/Resolving]
  - Drug ineffective for unapproved indication [Unknown]
